FAERS Safety Report 15302955 (Version 2)
Quarter: 2018Q3

REPORT INFORMATION
  Report Type: Report from Study
  Country: US (occurrence: US)
  Receive Date: 20180821
  Receipt Date: 20180924
  Transmission Date: 20181010
  Serious: Yes (Other)
  Sender: FDA-Public Use
  Company Number: US-MALLINCKRODT-T201802704

PATIENT
  Sex: Female

DRUGS (2)
  1. REPOSITORY CORTICOTROPIN INJECTION [Suspect]
     Active Substance: CORTICOTROPIN
     Dosage: 80 UNITS/1 ML, 3X WEEK (MONDAY, WEDNESDAY, FRIDAY)
     Route: 058
     Dates: start: 2018
  2. REPOSITORY CORTICOTROPIN INJECTION [Suspect]
     Active Substance: CORTICOTROPIN
     Indication: RHEUMATOID ARTHRITIS
     Dosage: 80 UNITS/1 ML, TWICE A WEEK, MONDAY AND THURSDAY
     Route: 058
     Dates: start: 20180521, end: 2018

REACTIONS (8)
  - Immunodeficiency [Unknown]
  - Influenza [Unknown]
  - Increased appetite [Not Recovered/Not Resolved]
  - Fatigue [Unknown]
  - Memory impairment [Unknown]
  - Wrong schedule [Not Recovered/Not Resolved]
  - Hypothyroidism [Not Recovered/Not Resolved]
  - Visual impairment [Unknown]

NARRATIVE: CASE EVENT DATE: 2018
